FAERS Safety Report 23707995 (Version 3)
Quarter: 2024Q3

REPORT INFORMATION
  Report Type: Report from Study
  Country: FR (occurrence: FR)
  Receive Date: 20240404
  Receipt Date: 20240701
  Transmission Date: 20241016
  Serious: Yes (Death, Life-Threatening, Hospitalization, Other)
  Sender: BAXTER
  Company Number: FR-BAXTER-2023BAX031762

PATIENT
  Age: 79 Year
  Sex: Male
  Weight: 80 kg

DRUGS (23)
  1. CYCLOPHOSPHAMIDE [Suspect]
     Active Substance: CYCLOPHOSPHAMIDE
     Indication: Diffuse large B-cell lymphoma stage IV
     Dosage: 1470 MG, EVERY 3 WEEKS
     Route: 042
     Dates: start: 20230817, end: 20230817
  2. CYCLOPHOSPHAMIDE [Suspect]
     Active Substance: CYCLOPHOSPHAMIDE
     Dosage: 1450 MG, EVERY 3 WEEKS
     Route: 042
     Dates: start: 20230907, end: 20230907
  3. DOXORUBICIN [Suspect]
     Active Substance: DOXORUBICIN
     Indication: Diffuse large B-cell lymphoma stage IV
     Dosage: 98 MG, EVERY 3 WEEKS
     Route: 042
     Dates: start: 20230817, end: 20230817
  4. DOXORUBICIN [Suspect]
     Active Substance: DOXORUBICIN
     Dosage: 97 MG, EVERY 3 WEEKS
     Route: 042
     Dates: start: 20230907, end: 20230907
  5. RITUXIMAB [Suspect]
     Active Substance: RITUXIMAB
     Indication: Diffuse large B-cell lymphoma stage IV
     Dosage: 740 MG, EVERY 3 WEEKS
     Route: 042
     Dates: start: 20230817, end: 20230817
  6. RITUXIMAB [Suspect]
     Active Substance: RITUXIMAB
     Dosage: 720 MG, EVERY 3 WEEKS
     Route: 042
     Dates: start: 20230907, end: 20230907
  7. VINCRISTINE [Suspect]
     Active Substance: VINCRISTINE
     Indication: Diffuse large B-cell lymphoma stage IV
     Dosage: 2 MG, EVERY 3 WEEKS
     Route: 042
     Dates: start: 20230817, end: 20230907
  8. PREDNISONE [Suspect]
     Active Substance: PREDNISONE
     Indication: Diffuse large B-cell lymphoma stage IV
     Dosage: 100 MG, C1-6, DAY 1-5, EVERY 1 DAYS
     Route: 048
     Dates: start: 20230818, end: 20230911
  9. EPCORITAMAB [Suspect]
     Active Substance: EPCORITAMAB
     Indication: Diffuse large B-cell lymphoma stage IV
     Dosage: 0.16 MG, PRIMING DOSE; C1, D1, TOTAL
     Route: 058
     Dates: start: 20230817, end: 20230817
  10. EPCORITAMAB [Suspect]
     Active Substance: EPCORITAMAB
     Dosage: 0.8 MG, INTERMEDIATE DOSE; C1, D8, TOTAL
     Route: 058
     Dates: start: 20230824, end: 20230824
  11. EPCORITAMAB [Suspect]
     Active Substance: EPCORITAMAB
     Dosage: 48 MG, FULL DOSE; C1, D15, TOTAL
     Route: 058
     Dates: start: 20230831, end: 20230831
  12. EPCORITAMAB [Suspect]
     Active Substance: EPCORITAMAB
     Dosage: 48 MG C2, D1 AND  8, EVERY 1 WEEKS
     Route: 058
     Dates: start: 20230907, end: 20230914
  13. BACTRIM [Concomitant]
     Active Substance: SULFAMETHOXAZOLE\TRIMETHOPRIM
     Indication: Antifungal prophylaxis
     Dosage: UNK, 3/WEEKS
     Route: 065
     Dates: start: 20230817
  14. FILGRASTIM [Concomitant]
     Active Substance: FILGRASTIM
     Indication: Antibiotic prophylaxis
     Dosage: 48 U, EVERY 1 WEEKS
     Route: 065
     Dates: start: 20230817
  15. VALACYCLOVIR HYDROCHLORIDE [Concomitant]
     Active Substance: VALACYCLOVIR HYDROCHLORIDE
     Indication: Antiviral prophylaxis
     Dosage: 500 MG, 2/DAYS
     Route: 065
     Dates: start: 20230817
  16. PRIMPERAN [Concomitant]
     Active Substance: METOCLOPRAMIDE HYDROCHLORIDE
     Indication: Prophylaxis of nausea and vomiting
     Dosage: 10 MG, AS NECESSARY
     Route: 065
     Dates: start: 20230817
  17. FUNGIZONE [Concomitant]
     Active Substance: AMPHOTERICIN B
     Indication: Infection prophylaxis
     Dosage: 3 DOSAGE FORM, 3/DAYS (START DATE: 2023)
     Route: 065
     Dates: start: 20230914
  18. SIMVASTATIN [Concomitant]
     Active Substance: SIMVASTATIN
     Indication: Dyslipidaemia
     Dosage: 20 MG, EVERY 1 DAYS
     Route: 065
  19. ALLOPURINOL [Concomitant]
     Active Substance: ALLOPURINOL
     Indication: Hyperuricaemia
     Dosage: 100 MG, EVERY 1 DAYS
     Route: 065
  20. POLYETHYLENE GLYCOLS [Concomitant]
     Active Substance: POLYETHYLENE GLYCOLS
     Indication: Constipation
     Dosage: 5.9 G, OCCASIONAL
     Route: 065
     Dates: start: 20230824
  21. ACETAMINOPHEN [Concomitant]
     Active Substance: ACETAMINOPHEN
     Indication: Pain prophylaxis
     Dosage: 650 MG, 2/ DAYS
     Route: 065
  22. .ALPHA.-TOCOPHEROL ACETATE, D- [Concomitant]
     Active Substance: .ALPHA.-TOCOPHEROL ACETATE, D-
     Indication: Vitamin supplementation
     Dosage: 1000 MG, EVERY 1 DAYS
     Route: 065
  23. TRAMADOL [Concomitant]
     Active Substance: TRAMADOL\TRAMADOL HYDROCHLORIDE
     Indication: Cancer pain
     Dosage: 75 MG, 2/ DAYS
     Route: 065

REACTIONS (4)
  - Shock haemorrhagic [Fatal]
  - Septic shock [Not Recovered/Not Resolved]
  - Thrombocytopenia [Not Recovered/Not Resolved]
  - Infection [Not Recovered/Not Resolved]

NARRATIVE: CASE EVENT DATE: 20230916
